FAERS Safety Report 21324084 (Version 4)
Quarter: 2024Q1

REPORT INFORMATION
  Report Type: Spontaneous
  Country: US (occurrence: US)
  Receive Date: 20220912
  Receipt Date: 20240315
  Transmission Date: 20240410
  Serious: Yes (Hospitalization)
  Sender: FDA-Public Use
  Company Number: US-PFIZER INC-202201147914

PATIENT
  Age: 54 Year
  Sex: Male
  Weight: 85 kg

DRUGS (18)
  1. LOMOTIL [Suspect]
     Active Substance: ATROPINE SULFATE\DIPHENOXYLATE HYDROCHLORIDE
     Indication: Diarrhoea
     Dosage: UNK (5MG - 0.05MG)
     Route: 048
  2. TALAZOPARIB [Concomitant]
     Active Substance: TALAZOPARIB
     Indication: Neoplasm
     Dosage: 0.25 MILLIGRAM QD, 1 WEEK ON/1 WEEK OFF
     Route: 048
     Dates: start: 20220715
  3. TALAZOPARIB [Concomitant]
     Active Substance: TALAZOPARIB
     Dosage: UNK
     Dates: start: 20220817
  4. RP-3500 [Concomitant]
     Active Substance: RP-3500
     Indication: Neoplasm
     Dosage: 80 MILLIGRAM, QD, 3 DAYS ON/4 DAYS OFF, 1 WEEK ON/1 WEEK OFF
     Route: 048
     Dates: start: 20220719
  5. RP-3500 [Concomitant]
     Active Substance: RP-3500
     Dosage: UNK
     Dates: start: 20220817
  6. NEULASTA [Concomitant]
     Active Substance: PEGFILGRASTIM
     Indication: Chills
     Dosage: UNK
     Dates: start: 20220805
  7. FLAGYL [Concomitant]
     Active Substance: METRONIDAZOLE\METRONIDAZOLE HYDROCHLORIDE
     Dosage: 500 MG
     Route: 042
  8. MAXIPIME [Concomitant]
     Active Substance: CEFEPIME HYDROCHLORIDE
     Dosage: 2000 MG
     Route: 042
  9. POTASSIUM PHOSPHATE, DIBASIC [Concomitant]
     Active Substance: POTASSIUM PHOSPHATE, DIBASIC
     Indication: Hypokalaemia
     Dosage: 250 ML
     Route: 042
  10. POTASSIUM PHOSPHATE, DIBASIC [Concomitant]
     Active Substance: POTASSIUM PHOSPHATE, DIBASIC
     Indication: Hypophosphataemia
  11. ZOLOFT [Concomitant]
     Active Substance: SERTRALINE HYDROCHLORIDE
     Dosage: UNK
     Dates: start: 20220207
  12. TEMOVATE [Concomitant]
     Active Substance: CLOBETASOL PROPIONATE
     Dosage: UNK
     Dates: start: 202109
  13. MIRALAX [Concomitant]
     Active Substance: POLYETHYLENE GLYCOL 3350
     Dosage: UNK
     Dates: start: 202109
  14. IBUPROFEN [Concomitant]
     Active Substance: IBUPROFEN
     Dosage: UNK
     Dates: start: 20220214
  15. VITAFUSION POWER ZINC [Concomitant]
     Dosage: UNK
     Dates: start: 2021
  16. CHLORPHENIRAMINE\HYDROCODONE [Concomitant]
     Active Substance: CHLORPHENIRAMINE\HYDROCODONE
     Dosage: UNK
     Dates: start: 20180625
  17. PEGFILGRASTIM [Concomitant]
     Active Substance: PEGFILGRASTIM
     Dosage: UNK
     Dates: start: 20220805, end: 20220805
  18. HEPARIN SODIUM, PORCINE [Concomitant]
     Active Substance: HEPARIN SODIUM
     Dosage: UNK
     Dates: start: 20220805, end: 20220805

REACTIONS (1)
  - Drug ineffective [Recovered/Resolved]
